FAERS Safety Report 8023650-2 (Version None)
Quarter: 2012Q1

REPORT INFORMATION
  Report Type: 
  Country: None (occurrence: None)
  Receive Date: 20120104
  Receipt Date: 20120104
  Transmission Date: 20120608
  Serious: Yes (Hospitalization)
  Sender: FDA-Public Use
  Company Number: None

PATIENT
  Sex: Male
  Weight: 82.9 kg

DRUGS (9)
  1. CENTRUM [Concomitant]
  2. ELIGARD [Concomitant]
  3. ASPIRIN [Concomitant]
  4. LEUSIN [Concomitant]
  5. TORISEL [Suspect]
     Indication: PROSTATE CANCER
     Dosage: 25MG Q WEEK IV
     Route: 042
     Dates: start: 20111130, end: 20111228
  6. BUMEX [Concomitant]
  7. CALCIUM ACETATE [Concomitant]
  8. DENOSUMAB [Concomitant]
  9. MEDROL PAK [Concomitant]

REACTIONS (3)
  - COMPUTERISED TOMOGRAM THORAX ABNORMAL [None]
  - DYSPNOEA EXERTIONAL [None]
  - HYPOXIA [None]
